FAERS Safety Report 21244578 (Version 4)
Quarter: 2023Q4

REPORT INFORMATION
  Report Type: Spontaneous
  Country: US (occurrence: US)
  Receive Date: 20220823
  Receipt Date: 20231128
  Transmission Date: 20240110
  Serious: No
  Sender: FDA-Public Use
  Company Number: US-PFIZER INC-PV202200047454

PATIENT
  Age: 64 Year
  Sex: Male
  Weight: 124.28 kg

DRUGS (4)
  1. VFEND [Suspect]
     Active Substance: VORICONAZOLE
     Indication: Fungal infection
     Dosage: 400 MG, 1X/DAY (200MG 60-DAY SUPPLY 2 PO (PER ORAL) QD (EVERYDAY) QTY (QUANTITY) 180)
     Route: 048
  2. VFEND [Suspect]
     Active Substance: VORICONAZOLE
     Indication: Aspergillus infection
     Dosage: 2 PO BID, QUANTITY 450
     Route: 048
  3. VFEND [Suspect]
     Active Substance: VORICONAZOLE
     Dosage: FOUR 200MG WHITE TABLETS BY MOUTH A DAY
  4. VFEND [Suspect]
     Active Substance: VORICONAZOLE
     Dosage: UNK, 2X/DAY (2 PO BID, QUANTITY 360)
     Route: 048

REACTIONS (3)
  - Viral infection [Unknown]
  - Drug ineffective [Unknown]
  - Intentional overdose [Unknown]
